FAERS Safety Report 9648304 (Version 1)
Quarter: 2013Q4

REPORT INFORMATION
  Report Type: Spontaneous
  Country: US (occurrence: None)
  Receive Date: 20131025
  Receipt Date: 20131025
  Transmission Date: 20140711
  Serious: Yes (Hospitalization)
  Sender: FDA-Public Use
  Company Number: None

PATIENT
  Age: 62 Year
  Sex: Male
  Weight: 65.3 kg

DRUGS (16)
  1. RIVAROXABAN [Suspect]
     Indication: ANTIPHOSPHOLIPID ANTIBODIES
     Route: 048
     Dates: start: 20130917, end: 20131003
  2. ACETAMINOPHEN [Concomitant]
  3. AZATHIOPRINE [Concomitant]
  4. CHOLECALCIFEROL [Concomitant]
  5. FERROUS FUMARATE [Concomitant]
  6. FEXOFENADINE [Concomitant]
  7. FLUTICASONE [Concomitant]
  8. FOLIC ACID-VIT [Concomitant]
  9. B6-VIT [Concomitant]
  10. B12 [Concomitant]
  11. TUMERIC FORCE [Concomitant]
  12. OMEGA-3 FATTY ACIDS [Concomitant]
  13. PRAVASTATIN [Concomitant]
  14. PREDNISONE [Concomitant]
  15. RIVAROXABAN (XARELTO) [Concomitant]
  16. SERTRALINE [Concomitant]

REACTIONS (17)
  - Cough [None]
  - Fatigue [None]
  - Asthenia [None]
  - Dyspnoea [None]
  - Abdominal pain [None]
  - Diarrhoea [None]
  - Contusion [None]
  - Oxygen saturation decreased [None]
  - White blood cell count increased [None]
  - Haematocrit decreased [None]
  - Platelet count decreased [None]
  - Hypoxia [None]
  - Haemoptysis [None]
  - Systemic lupus erythematosus [None]
  - Lupus pneumonitis [None]
  - Pneumonia [None]
  - Drug interaction [None]
